FAERS Safety Report 5050370-9 (Version None)
Quarter: 2006Q3

REPORT INFORMATION
  Report Type: 
  Country: None (occurrence: None)
  Receive Date: 20060707
  Receipt Date: 20060626
  Transmission Date: 20061208
  Serious: Yes (Hospitalization)
  Sender: FDA-Public Use
  Company Number: 060626-0000568

PATIENT
  Age: 35 Year
  Sex: Male

DRUGS (10)
  1. TRANXENE [Suspect]
  2. DEPAKENE [Suspect]
     Indication: EPILEPSY
     Dosage: 500 MG; QD; PO
     Route: 048
     Dates: start: 20030101, end: 20060512
  3. METRONIDAZOLE [Suspect]
     Dosage: 500 MG; TID; PO
     Route: 048
     Dates: start: 20060507, end: 20060512
  4. ROXITHROMYCIN (ROXITHROMYCIN) [Suspect]
     Dosage: 150 MG; BID; PO
     Route: 048
     Dates: start: 20060507, end: 20060512
  5. HEPARIN [Suspect]
     Dosage: 5000 IU; QD; SC
     Route: 058
     Dates: end: 20060512
  6. SERTRALINE [Suspect]
     Indication: DEPRESSION
     Dosage: 50  MG; BID; PO
     Route: 048
     Dates: end: 20060512
  7. OLANZAPINE [Suspect]
     Indication: MENTAL DISORDER
     Dosage: 20 MG; QD; PO
     Route: 048
     Dates: end: 20060512
  8. BACLOFEN [Suspect]
  9. POTASSIUM CHLORIDE [Suspect]
     Dosage: 600 MG; QD; PO
     Route: 048
  10. DOMPERIDONE (DOMPERIDONE) [Suspect]
     Dosage: PO
     Route: 048

REACTIONS (4)
  - ABNORMAL BEHAVIOUR [None]
  - DEPRESSION [None]
  - MENTAL DISORDER [None]
  - PANCREATITIS [None]
